FAERS Safety Report 7865898-3 (Version None)
Quarter: 2011Q4

REPORT INFORMATION
  Report Type: 
  Country: None (occurrence: None)
  Receive Date: 20111028
  Receipt Date: 20110317
  Transmission Date: 20120403
  Serious: Yes (Other)
  Sender: FDA-Public Use
  Company Number: US-GLAXOSMITHKLINE-A0918674A

PATIENT
  Age: 56 Year
  Sex: Female

DRUGS (11)
  1. ADVAIR DISKUS 100/50 [Suspect]
     Indication: ASTHMA
     Dosage: 1PUFF TWICE PER DAY
     Route: 055
     Dates: start: 20110303
  2. LEVOTHYROXINE SODIUM [Concomitant]
  3. STEROID SHOT [Concomitant]
  4. SINGULAIR [Concomitant]
  5. TYLENOL-500 [Concomitant]
  6. PREDNISONE [Concomitant]
  7. LEXAPRO [Concomitant]
  8. LIPITOR [Concomitant]
  9. METFORMIN HCL [Concomitant]
  10. PROTONIX [Concomitant]
  11. ZEGERID [Concomitant]

REACTIONS (3)
  - DRUG INEFFECTIVE [None]
  - DYSPNOEA [None]
  - PRODUCT QUALITY ISSUE [None]
